FAERS Safety Report 5288281-6 (Version None)
Quarter: 2007Q2

REPORT INFORMATION
  Report Type: 
  Country: None (occurrence: None)
  Receive Date: 20070405
  Receipt Date: 20070326
  Transmission Date: 20071010
  Serious: Yes (Hospitalization)
  Sender: FDA-Public Use
  Company Number: US-ROCHE-487553

PATIENT
  Age: 47 Year
  Sex: Female
  Weight: 99.8 kg

DRUGS (8)
  1. PEGASYS [Suspect]
     Indication: DRUG USE FOR UNKNOWN INDICATION
     Route: 058
     Dates: start: 20070214, end: 20070304
  2. RIBAVIRIN [Suspect]
     Indication: DRUG USE FOR UNKNOWN INDICATION
     Route: 048
     Dates: start: 20070214, end: 20070304
  3. NEURONTIN [Concomitant]
  4. DIGOXIN [Concomitant]
  5. MOTRIN [Concomitant]
  6. PREVACID [Concomitant]
  7. LOPRESSOR [Concomitant]
  8. DITROPAN [Concomitant]

REACTIONS (3)
  - CELLULITIS [None]
  - HAEMATURIA [None]
  - TOOTH ABSCESS [None]
